FAERS Safety Report 7190332-9 (Version None)
Quarter: 2010Q4

REPORT INFORMATION
  Report Type: 
  Country: None (occurrence: None)
  Receive Date: 20101210
  Receipt Date: 20101126
  Transmission Date: 20110411
  Serious: Yes (Hospitalization, Other)
  Sender: FDA-Public Use
  Company Number: 2010005181

PATIENT
  Age: 67 Year
  Sex: Male

DRUGS (7)
  1. TARCEVA [Suspect]
     Indication: BRONCHIAL CARCINOMA
     Dosage: (150 MG,QD), ORAL
     Route: 048
     Dates: start: 20100917, end: 20101103
  2. KARDEGIC (ACETYLSALICYLATE LYSINE) [Concomitant]
  3. ACETAMINOPHEN [Concomitant]
  4. CARDENSIEL [Concomitant]
  5. ESIDRIX [Concomitant]
  6. CRFSTOR [Concomitant]
  7. AVODART [Concomitant]

REACTIONS (10)
  - GASTRIC ULCER [None]
  - GASTROINTESTINAL HAEMORRHAGE [None]
  - LOSS OF CONSCIOUSNESS [None]
  - LYMPHADENOPATHY [None]
  - MALAISE [None]
  - MELAENA [None]
  - NORMOCHROMIC NORMOCYTIC ANAEMIA [None]
  - RECTAL HAEMORRHAGE [None]
  - SPINAL CORD NEOPLASM [None]
  - THROMBOCYTOSIS [None]
